FAERS Safety Report 25928337 (Version 1)
Quarter: 2025Q4

REPORT INFORMATION
  Report Type: Spontaneous
  Country: US (occurrence: US)
  Receive Date: 20251016
  Receipt Date: 20251016
  Transmission Date: 20260118
  Serious: Yes (Hospitalization)
  Sender: RIGEL PHARMACEUTICALS
  Company Number: US-RIGEL Pharmaceuticals, INC-20251000064

PATIENT
  Sex: Male
  Weight: 99.7 kg

DRUGS (4)
  1. REZLIDHIA [Suspect]
     Active Substance: OLUTASIDENIB
     Indication: Chronic myelomonocytic leukaemia
     Dosage: 150 MG, BID
     Route: 048
     Dates: start: 20250625
  2. REZLIDHIA [Suspect]
     Active Substance: OLUTASIDENIB
     Dosage: UNK
     Route: 065
  3. XOSPATA [Concomitant]
     Active Substance: GILTERITINIB
     Indication: Chronic myelomonocytic leukaemia
     Dosage: 80 MG, QD
     Route: 048
  4. CEFDINIR [Concomitant]
     Active Substance: CEFDINIR
     Indication: Product used for unknown indication
     Dosage: 300 MG, BID

REACTIONS (2)
  - Fluid retention [Unknown]
  - Off label use [Unknown]
